FAERS Safety Report 21467585 (Version 4)
Quarter: 2023Q4

REPORT INFORMATION
  Report Type: Report from Study
  Country: US (occurrence: US)
  Receive Date: 20221017
  Receipt Date: 20231212
  Transmission Date: 20240110
  Serious: Yes (Other)
  Sender: FDA-Public Use
  Company Number: US-GW PHARMA-2022-US-028470

PATIENT
  Age: 9 Year
  Sex: Male
  Weight: 20 kg

DRUGS (6)
  1. EPIDIOLEX [Suspect]
     Active Substance: CANNABIDIOL
     Indication: Epilepsy
     Dosage: 2.5 MILLILITER, BID
     Route: 048
     Dates: start: 202012
  2. EPIDIOLEX [Suspect]
     Active Substance: CANNABIDIOL
     Indication: Cerebral palsy
     Dosage: 2 MILLILITER
     Route: 048
     Dates: start: 20210420
  3. EPIDIOLEX [Suspect]
     Active Substance: CANNABIDIOL
     Indication: Lennox-Gastaut syndrome
     Dosage: 2 MILLILITER
     Route: 048
     Dates: start: 20210508
  4. EPIDIOLEX [Suspect]
     Active Substance: CANNABIDIOL
     Indication: Epilepsy
  5. KEPPRA [Concomitant]
     Active Substance: LEVETIRACETAM
     Indication: Epilepsy
     Dosage: UNK
  6. TRILEPTAL [Concomitant]
     Active Substance: OXCARBAZEPINE
     Indication: Epilepsy
     Dosage: UNK

REACTIONS (6)
  - Generalised tonic-clonic seizure [Unknown]
  - Seizure [Not Recovered/Not Resolved]
  - Seizure [Recovered/Resolved]
  - Nasopharyngitis [Unknown]
  - Product dose omission issue [Unknown]
  - Off label use [Unknown]

NARRATIVE: CASE EVENT DATE: 20220830
